FAERS Safety Report 9886649 (Version 2)
Quarter: 2014Q3

REPORT INFORMATION
  Report Type: Spontaneous
  Country: US (occurrence: US)
  Receive Date: 20140210
  Receipt Date: 20140820
  Transmission Date: 20150326
  Serious: Yes (Hospitalization, Other)
  Sender: FDA-Public Use
  Company Number: US-009507513-1402USA004323

PATIENT
  Sex: Female
  Weight: 61.22 kg

DRUGS (1)
  1. NUVARING [Suspect]
     Active Substance: ETHINYL ESTRADIOL\ETONOGESTREL
     Dosage: 0.12-0.015 MG/24 HR
     Route: 067

REACTIONS (2)
  - Pulmonary embolism [Recovering/Resolving]
  - Pleuritic pain [Recovering/Resolving]

NARRATIVE: CASE EVENT DATE: 20140104
